FAERS Safety Report 15202808 (Version 3)
Quarter: 2019Q2

REPORT INFORMATION
  Report Type: Spontaneous
  Country: HU (occurrence: HU)
  Receive Date: 20180726
  Receipt Date: 20190614
  Transmission Date: 20190711
  Serious: Yes (Death, Hospitalization)
  Sender: FDA-Public Use
  Company Number: HU-ACTELION-A-CH2018-175694

PATIENT
  Sex: Female

DRUGS (5)
  1. VERAPAMIL [Concomitant]
     Active Substance: VERAPAMIL HYDROCHLORIDE
     Dosage: 120 MG, TID
     Route: 048
  2. SILDENAFIL. [Concomitant]
     Active Substance: SILDENAFIL
     Indication: PULMONARY ARTERIAL HYPERTENSION
     Dosage: 20 MG, TID
     Route: 048
     Dates: start: 2012
  3. TRIMETAZIDIN [Concomitant]
     Active Substance: TRIMETAZIDINE
     Dosage: 35 MG, BID
     Route: 048
  4. UPTRAVI [Suspect]
     Active Substance: SELEXIPAG
     Indication: PULMONARY ARTERIAL HYPERTENSION
     Dosage: 600 MCG, BID
     Route: 048
  5. STAYVEER [Suspect]
     Active Substance: BOSENTAN
     Indication: PULMONARY ARTERIAL HYPERTENSION
     Dosage: 125 MG, BID
     Route: 048
     Dates: start: 2012

REACTIONS (7)
  - Completed suicide [Fatal]
  - Condition aggravated [Recovered/Resolved]
  - Cardio-respiratory arrest [Fatal]
  - Renal failure [Fatal]
  - Pulmonary arterial hypertension [Recovered/Resolved]
  - Exercise test abnormal [Recovered/Resolved]
  - General physical health deterioration [Recovered/Resolved]
